FAERS Safety Report 8187940-5 (Version None)
Quarter: 2012Q1

REPORT INFORMATION
  Report Type: 
  Country: None (occurrence: None)
  Receive Date: 20120306
  Receipt Date: 20120229
  Transmission Date: 20120608
  Serious: Yes (Hospitalization)
  Sender: FDA-Public Use
  Company Number: FR-GLAXOSMITHKLINE-B0780193A

PATIENT
  Sex: Female

DRUGS (10)
  1. TRANSIPEG [Concomitant]
     Route: 048
  2. ESIDRIX [Concomitant]
  3. TIAPRIDAL [Concomitant]
  4. NICARDIPINE HYDROCHLORIDE [Concomitant]
     Route: 048
  5. MIANSERINE [Suspect]
     Indication: PRODUCT USED FOR UNKNOWN INDICATION
     Dosage: 30MG PER DAY
     Route: 048
     Dates: start: 20111101, end: 20120103
  6. POTASSIUM CHLORIDE [Concomitant]
  7. ASPIRIN [Concomitant]
     Route: 048
  8. LAMICTAL [Suspect]
     Indication: EPILEPSY
     Dosage: 25MG PER DAY
     Route: 048
     Dates: start: 20111127, end: 20120101
  9. NEULEPTIL [Suspect]
     Indication: PRODUCT USED FOR UNKNOWN INDICATION
     Dosage: 10MG TWICE PER DAY
     Route: 048
     Dates: start: 20111109, end: 20120105
  10. PRAVASTATIN [Suspect]
     Indication: PRODUCT USED FOR UNKNOWN INDICATION
     Dosage: 20MG PER DAY
     Route: 048
     Dates: start: 20111104, end: 20120108

REACTIONS (8)
  - HEPATOCELLULAR INJURY [None]
  - DRUG RASH WITH EOSINOPHILIA AND SYSTEMIC SYMPTOMS [None]
  - RASH MORBILLIFORM [None]
  - LYMPHOCYTOSIS [None]
  - HYPERTHERMIA [None]
  - EOSINOPHILIA [None]
  - FACE OEDEMA [None]
  - CHOLESTASIS [None]
